FAERS Safety Report 9105921 (Version 4)
Quarter: 2013Q3

REPORT INFORMATION
  Report Type: Report from Study
  Country: US (occurrence: US)
  Receive Date: 20130220
  Receipt Date: 20130710
  Transmission Date: 20140515
  Serious: No
  Sender: FDA-Public Use
  Company Number: US-ELI_LILLY_AND_COMPANY-US201302003757

PATIENT
  Sex: Female

DRUGS (8)
  1. TERIPARATIDE [Suspect]
     Indication: OSTEOPOROSIS
     Dosage: 20 UG, QD
     Dates: start: 20130130, end: 20130201
  2. TERIPARATIDE [Suspect]
     Dosage: 20 UG, QD
     Dates: start: 201302
  3. HYDROCHLOROTHIAZIDE [Concomitant]
  4. NEXIUM [Concomitant]
  5. BABY ASPIRIN [Concomitant]
     Dosage: 81 MG, UNK
  6. MULTIVITAMIN [Concomitant]
  7. CALCIUM +VIT D [Concomitant]
  8. FISH OIL [Concomitant]

REACTIONS (2)
  - Skin discolouration [Unknown]
  - Pruritus [Recovering/Resolving]
